FAERS Safety Report 19305827 (Version 1)
Quarter: 2021Q2

REPORT INFORMATION
  Report Type: Spontaneous
  Country: GB (occurrence: GB)
  Receive Date: 20210526
  Receipt Date: 20210526
  Transmission Date: 20210717
  Serious: Yes (Other)
  Sender: FDA-Public Use
  Company Number: GB-DRREDDYS-GER/UKI/21/0135631

PATIENT
  Age: 81 Year
  Sex: Male

DRUGS (1)
  1. DONEPEZIL. [Suspect]
     Active Substance: DONEPEZIL
     Indication: ILL-DEFINED DISORDER
     Dosage: 10MG
     Route: 048
     Dates: start: 20210323, end: 20210510

REACTIONS (3)
  - Mania [Recovering/Resolving]
  - Disinhibition [Recovering/Resolving]
  - Apathy [Recovering/Resolving]

NARRATIVE: CASE EVENT DATE: 20210323
